FAERS Safety Report 25640562 (Version 1)
Quarter: 2025Q3

REPORT INFORMATION
  Report Type: Spontaneous
  Country: US (occurrence: US)
  Receive Date: 20250804
  Receipt Date: 20250804
  Transmission Date: 20251021
  Serious: No
  Sender: SCPHARMACEUTICALS
  Company Number: US-SCPHARMACEUTICALS-2025-SCPH-US000292

PATIENT

DRUGS (1)
  1. FUROSCIX [Suspect]
     Active Substance: FUROSEMIDE
     Indication: Product used for unknown indication
     Route: 058
     Dates: start: 20250419, end: 20250419

REACTIONS (4)
  - Blood urine present [Recovered/Resolved]
  - Haemorrhage urinary tract [Recovered/Resolved]
  - Bacteraemia [Not Recovered/Not Resolved]
  - Infusion site mass [Not Recovered/Not Resolved]

NARRATIVE: CASE EVENT DATE: 20250419
